FAERS Safety Report 14404020 (Version 2)
Quarter: 2018Q2

REPORT INFORMATION
  Report Type: Spontaneous
  Country: JP (occurrence: JP)
  Receive Date: 20180117
  Receipt Date: 20180517
  Transmission Date: 20180711
  Serious: Yes (Other)
  Sender: FDA-Public Use
  Company Number: JP-MYLANLABS-2018M1003178

PATIENT
  Age: 29 Year
  Sex: Female

DRUGS (3)
  1. CARBOPLATIN INJ. 50MG ^NK^ [Suspect]
     Active Substance: CARBOPLATIN
     Indication: ADENOSQUAMOUS CARCINOMA OF THE CERVIX
     Route: 065
  2. AVASTIN [Suspect]
     Active Substance: BEVACIZUMAB
     Indication: ADENOSQUAMOUS CARCINOMA OF THE CERVIX
  3. PACLITAXEL. [Suspect]
     Active Substance: PACLITAXEL
     Indication: ADENOSQUAMOUS CARCINOMA OF THE CERVIX
     Route: 065

REACTIONS (3)
  - Protein urine [Unknown]
  - White blood cell count decreased [Unknown]
  - Nausea [Unknown]
